FAERS Safety Report 21492578 (Version 6)
Quarter: 2023Q2

REPORT INFORMATION
  Report Type: Report from Study
  Country: US (occurrence: US)
  Receive Date: 20221021
  Receipt Date: 20230412
  Transmission Date: 20230721
  Serious: Yes (Other)
  Sender: FDA-Public Use
  Company Number: US-NOVARTISPH-NVSC2022US237157

PATIENT
  Sex: Female

DRUGS (1)
  1. OMNITROPE [Suspect]
     Active Substance: SOMATROPIN
     Indication: Diabetes mellitus
     Dosage: 0.6 MG, QD
     Route: 058
     Dates: start: 20150728

REACTIONS (9)
  - Myocardial infarction [Unknown]
  - Diabetes mellitus [Unknown]
  - Suicidal ideation [Unknown]
  - Fall [Unknown]
  - Rash [Unknown]
  - Mental disorder [Unknown]
  - Hypertension [Unknown]
  - Product physical issue [Unknown]
  - Product use in unapproved indication [Unknown]
